FAERS Safety Report 7913196-1 (Version None)
Quarter: 2011Q4

REPORT INFORMATION
  Report Type: 
  Country: None (occurrence: None)
  Receive Date: 20111114
  Receipt Date: 20101124
  Transmission Date: 20120403
  Serious: Yes (Other)
  Sender: FDA-Public Use
  Company Number: GB-PFIZER INC-2011272450

PATIENT
  Age: 53 Year
  Sex: Female

DRUGS (3)
  1. METHOTREXATE SODIUM [Suspect]
     Indication: RHEUMATOID ARTHRITIS
  2. SULFASALAZINE [Suspect]
     Indication: RHEUMATOID ARTHRITIS
     Dosage: UNK
  3. RITUXIMAB [Concomitant]

REACTIONS (6)
  - EMOTIONAL DISORDER [None]
  - ASTHENIA [None]
  - FATIGUE [None]
  - INSOMNIA [None]
  - NON-HODGKIN'S LYMPHOMA [None]
  - PAIN [None]
